FAERS Safety Report 9807045 (Version 2)
Quarter: 2014Q1

REPORT INFORMATION
  Report Type: Spontaneous
  Country: DE (occurrence: DE)
  Receive Date: 20140110
  Receipt Date: 20140203
  Transmission Date: 20141002
  Serious: Yes (Other)
  Sender: FDA-Public Use
  Company Number: DE-ROCHE-1331420

PATIENT
  Age: 69 Year
  Sex: Male
  Weight: 98 kg

DRUGS (6)
  1. MABTHERA [Suspect]
     Indication: ACQUIRED HAEMOPHILIA
     Route: 042
     Dates: start: 20131127, end: 20131220
  2. VOCADO [Concomitant]
     Indication: HYPERTENSION
     Route: 048
  3. MEBEVERIN [Concomitant]
     Indication: IRRITABLE BOWEL SYNDROME
     Route: 048
  4. LANTUS [Concomitant]
     Indication: DIABETES MELLITUS
     Route: 058
  5. IBUPROFEN [Concomitant]
     Indication: PAIN
     Route: 048
  6. VIGANTOLETTEN [Concomitant]
     Indication: VITAMIN D DEFICIENCY
     Dosage: 1000 UNITS
     Route: 048
     Dates: start: 20131220

REACTIONS (4)
  - Swelling [Not Recovered/Not Resolved]
  - Arthralgia [Not Recovered/Not Resolved]
  - Joint swelling [Unknown]
  - Off label use [Unknown]
